FAERS Safety Report 4502084-9 (Version None)
Quarter: 2004Q4

REPORT INFORMATION
  Report Type: 
  Country: None (occurrence: None)
  Receive Date: 20041116
  Receipt Date: 20041111
  Transmission Date: 20050328
  Serious: Yes (Death, Hospitalization)
  Sender: FDA-Public Use
  Company Number: BR-MERCK-0411BRA00099

PATIENT
  Age: 88 Year
  Sex: Female

DRUGS (3)
  1. VIOXX [Suspect]
     Indication: ARTHRITIS
     Route: 048
     Dates: start: 20000731, end: 20040605
  2. PHENOBARBITAL [Concomitant]
     Indication: ARTHRITIS
     Route: 065
  3. [THERAPY UNSPECIFIED] [Concomitant]
     Route: 065

REACTIONS (3)
  - CEREBROVASCULAR ACCIDENT [None]
  - RENAL DISORDER [None]
  - RENAL FAILURE CHRONIC [None]
